FAERS Safety Report 11965483 (Version 1)
Quarter: 2016Q1

REPORT INFORMATION
  Report Type: Spontaneous
  Country: JP (occurrence: JP)
  Receive Date: 20160127
  Receipt Date: 20160127
  Transmission Date: 20160526
  Serious: Yes (Death, Other)
  Sender: FDA-Public Use
  Company Number: JP-SUN PHARMACEUTICAL INDUSTRIES LTD-2016R1-110167

PATIENT
  Age: 74 Year
  Sex: Male

DRUGS (1)
  1. DOCETAXEL. [Suspect]
     Active Substance: DOCETAXEL
     Indication: ADJUVANT THERAPY
     Dosage: UNK
     Route: 042

REACTIONS (3)
  - Condition aggravated [Unknown]
  - Death [Fatal]
  - Pneumothorax [Unknown]
